FAERS Safety Report 25474262 (Version 1)
Quarter: 2025Q2

REPORT INFORMATION
  Report Type: Spontaneous
  Country: US (occurrence: None)
  Receive Date: 20250623
  Receipt Date: 20250623
  Transmission Date: 20250716
  Serious: Yes (Hospitalization)
  Sender: FDA-CTU
  Company Number: None

PATIENT
  Sex: Female

DRUGS (3)
  1. PIQRAY [Suspect]
     Active Substance: ALPELISIB
     Indication: Autonomic neuropathy
     Dosage: FREQUENCY : DAILY;?
     Route: 048
     Dates: start: 20241230
  2. PIQRAY [Suspect]
     Active Substance: ALPELISIB
     Indication: Neuropathy peripheral
  3. LYNPARZA [Suspect]
     Active Substance: OLAPARIB

REACTIONS (4)
  - Diarrhoea [None]
  - Dehydration [None]
  - Fall [None]
  - Therapy change [None]
